FAERS Safety Report 4581941-1 (Version None)
Quarter: 2005Q1

REPORT INFORMATION
  Report Type: 
  Country: None (occurrence: None)
  Receive Date: 20050127
  Receipt Date: 20040910
  Transmission Date: 20050727
  Serious: No
  Sender: FDA-Public Use
  Company Number: USA040977929

PATIENT
  Age: 54 Year
  Sex: Male
  Weight: 102 kg

DRUGS (6)
  1. STRATTERA [Suspect]
     Indication: TOURETTE'S DISORDER
     Dosage: 25 MG DAY
     Dates: start: 20040401
  2. PROZAC [Suspect]
     Indication: MUSCLE DISORDER
  3. ATENOLOL [Concomitant]
  4. WELLBUTRIN [Concomitant]
  5. CLONIDINE [Concomitant]
  6. ZOLOFT [Concomitant]

REACTIONS (6)
  - BLOOD IRON DECREASED [None]
  - DRUG EFFECT DECREASED [None]
  - EXCITABILITY [None]
  - FATIGUE [None]
  - NIGHTMARE [None]
  - THROAT TIGHTNESS [None]
